FAERS Safety Report 22884629 (Version 3)
Quarter: 2024Q1

REPORT INFORMATION
  Report Type: Report from Study
  Country: BR (occurrence: BR)
  Receive Date: 20230830
  Receipt Date: 20240105
  Transmission Date: 20240409
  Serious: No
  Sender: FDA-Public Use
  Company Number: BR-SANDOZ-SDZ2023BR019736

PATIENT
  Sex: Male

DRUGS (1)
  1. OMNITROPE [Suspect]
     Active Substance: SOMATROPIN
     Indication: Product used for unknown indication
     Dosage: 1.5 MG (DAY AUG/14 PURCHASED THE 3RD AMPOULE, IT WAS THE 21ST DAY OF APPLICATION.)
     Route: 065

REACTIONS (2)
  - Injection site discharge [Not Recovered/Not Resolved]
  - Incorrect dose administered by device [Unknown]
